FAERS Safety Report 9232675 (Version 1)
Quarter: 2013Q2

REPORT INFORMATION
  Report Type: Spontaneous
  Country: US (occurrence: US)
  Receive Date: 20130416
  Receipt Date: 20130416
  Transmission Date: 20140414
  Serious: No
  Sender: FDA-Public Use
  Company Number: US-009507513-1304USA007093

PATIENT
  Age: 30 Year
  Sex: Female

DRUGS (1)
  1. PROVENTIL [Suspect]
     Dosage: UNK
     Route: 055
     Dates: start: 20130401

REACTIONS (3)
  - Drug dose omission [Unknown]
  - Product quality issue [Unknown]
  - No adverse event [Unknown]
